FAERS Safety Report 5488135-6 (Version None)
Quarter: 2007Q4

REPORT INFORMATION
  Report Type: 
  Country: None (occurrence: None)
  Receive Date: 20071017
  Receipt Date: 20071009
  Transmission Date: 20080405
  Serious: Yes (Hospitalization)
  Sender: FDA-Public Use
  Company Number: FR-ASTRAZENECA-2007CG01438

PATIENT
  Age: 22274 Day
  Sex: Female
  Weight: 56 kg

DRUGS (9)
  1. NOLVADEX [Suspect]
     Indication: BREAST CANCER FEMALE
     Route: 048
     Dates: start: 19920615
  2. DI-ANTALVIC [Concomitant]
  3. VITAMINE A + E [Concomitant]
  4. VITAMINE C [Concomitant]
  5. LUTERAN [Concomitant]
  6. RIVOTRIL [Concomitant]
     Route: 048
  7. VASTAREL [Concomitant]
  8. LAMALINE [Concomitant]
  9. METHOTREXATE [Concomitant]
     Indication: BREAST CANCER FEMALE
     Dosage: ONE INJECTION OF 2 ML EVERY TWO MONTHS
     Dates: start: 19920101, end: 20060101

REACTIONS (3)
  - DEEP VEIN THROMBOSIS [None]
  - MYALGIA [None]
  - TENDON PAIN [None]
